FAERS Safety Report 16453341 (Version 1)
Quarter: 2019Q2

REPORT INFORMATION
  Report Type: Spontaneous
  Country: US (occurrence: US)
  Receive Date: 20190619
  Receipt Date: 20190619
  Transmission Date: 20190711
  Serious: No
  Sender: FDA-Public Use
  Company Number: US-SA-2019SA163499

PATIENT
  Age: 78 Year
  Sex: Female

DRUGS (1)
  1. DUPIXENT [Suspect]
     Active Substance: DUPILUMAB
     Indication: DERMATITIS ATOPIC
     Dosage: 300 MG, QOW
     Dates: start: 2017, end: 20190604

REACTIONS (5)
  - Swelling face [Unknown]
  - Hypersensitivity [Unknown]
  - Urticaria [Unknown]
  - Lip swelling [Unknown]
  - Erythema [Unknown]
